FAERS Safety Report 12486385 (Version 2)
Quarter: 2016Q3

REPORT INFORMATION
  Report Type: Spontaneous
  Country: FR (occurrence: FR)
  Receive Date: 20160621
  Receipt Date: 20160926
  Transmission Date: 20161109
  Serious: Yes (Hospitalization)
  Sender: FDA-Public Use
  Company Number: FR-JNJFOC-20160612613

PATIENT
  Age: 78 Year
  Sex: Male

DRUGS (15)
  1. DUROGESIC [Suspect]
     Active Substance: FENTANYL
     Indication: PAIN
     Route: 062
  2. LAROXYL [Concomitant]
     Active Substance: AMITRIPTYLINE
     Indication: PAIN
     Dosage: 5 DROPS IN THE MORNING AND AT NOON AND 10 DROPS IN THE EVENING
     Route: 048
     Dates: end: 20160406
  3. ALPRAZOLAM. [Concomitant]
     Active Substance: ALPRAZOLAM
     Indication: ANXIETY
     Dosage: ? TABLET IN THE MORNING AND AT NOON AND 1 TABLET IN THE EVENING
     Route: 048
  4. SOLIAN [Concomitant]
     Active Substance: AMISULPRIDE
     Indication: AGITATION
     Dosage: 1 DF IN THE EVENING
     Route: 048
  5. DUROGESIC [Suspect]
     Active Substance: FENTANYL
     Indication: PAIN
     Route: 062
     Dates: start: 20160427
  6. VENLAFAXIN [Concomitant]
     Active Substance: VENLAFAXINE HYDROCHLORIDE
     Indication: DEPRESSION
     Route: 048
  7. RISPERDAL [Concomitant]
     Active Substance: RISPERIDONE
     Indication: AGITATION
     Route: 048
     Dates: start: 20160407
  8. TRANXENE T-TAB [Concomitant]
     Active Substance: CLORAZEPATE DIPOTASSIUM
     Indication: AGITATION
     Dosage: 1 DF IN THE MORNING AND IN THE EVENING WHEN NEEDED
     Route: 030
     Dates: start: 20160406
  9. KARDEGIC [Concomitant]
     Active Substance: ASPIRIN LYSINE
     Indication: CARDIAC FAILURE
     Dosage: 1 DF IN THE NOON
     Route: 048
  10. NEURONTIN [Concomitant]
     Active Substance: GABAPENTIN
     Indication: PAIN
     Route: 048
  11. NOCTAMIDE [Concomitant]
     Active Substance: LORMETAZEPAM
     Indication: INSOMNIA
     Dosage: 1 DF IN THE EVENING
     Route: 048
  12. DUROGESIC [Suspect]
     Active Substance: FENTANYL
     Indication: PAIN
     Route: 062
  13. DUROGESIC [Suspect]
     Active Substance: FENTANYL
     Indication: PAIN
     Route: 062
     Dates: start: 20160418
  14. TAREG [Concomitant]
     Active Substance: VALSARTAN
     Indication: HYPERTENSION
     Dosage: 1 TABLET IN THE MORNING
     Route: 048
  15. LYTOS [Concomitant]
     Active Substance: CLODRONATE DISODIUM
     Indication: PLASMA CELL MYELOMA
     Route: 048

REACTIONS (1)
  - Acute respiratory failure [Recovered/Resolved]

NARRATIVE: CASE EVENT DATE: 20160408
